FAERS Safety Report 6696826-4 (Version None)
Quarter: 2010Q2

REPORT INFORMATION
  Report Type: 
  Country: None (occurrence: None)
  Receive Date: 20100421
  Receipt Date: 20100120
  Transmission Date: 20101027
  Serious: No
  Sender: FDA-Public Use
  Company Number: US-000010

PATIENT
  Sex: Female
  Weight: 24.9478 kg

DRUGS (6)
  1. KUVAN [Suspect]
     Dosage: ORAL
     Route: 048
     Dates: start: 20090101
  2. NASONEX [Concomitant]
  3. METHLYLIN [Concomitant]
  4. CRANTEX [Concomitant]
  5. SINGULAIR [Concomitant]
  6. FLUOXETINE HCL [Concomitant]

REACTIONS (1)
  - MEMORY IMPAIRMENT [None]
